FAERS Safety Report 10720768 (Version 2)
Quarter: 2015Q1

REPORT INFORMATION
  Report Type: Spontaneous
  Country: BE (occurrence: BE)
  Receive Date: 20150119
  Receipt Date: 20150120
  Transmission Date: 20150721
  Serious: Yes (Hospitalization)
  Sender: FDA-Public Use
  Company Number: PHHY2015BE004072

PATIENT
  Age: 69 Year
  Sex: Female

DRUGS (8)
  1. ACLASTA [Suspect]
     Active Substance: ZOLEDRONIC ACID
     Dosage: 5 MG, YEARLY
     Route: 042
     Dates: start: 20140325
  2. PANTOMED [Concomitant]
     Active Substance: DEXPANTHENOL
     Indication: HIATUS HERNIA
  3. TOVIAZ [Concomitant]
     Active Substance: FESOTERODINE FUMARATE
     Indication: URINARY INCONTINENCE
     Route: 048
  4. PANTOMED [Concomitant]
     Active Substance: DEXPANTHENOL
     Indication: GASTROOESOPHAGEAL REFLUX DISEASE
     Route: 048
  5. L-THYROXINE [Concomitant]
     Active Substance: LEVOTHYROXINE
     Indication: THYROIDECTOMY
     Dosage: 125 OT, QD
     Route: 048
  6. ACLASTA [Suspect]
     Active Substance: ZOLEDRONIC ACID
     Indication: OSTEOPOROSIS
     Dosage: 5 MG, YEARLY
     Route: 042
     Dates: start: 201303
  7. DEPAKINE [Concomitant]
     Active Substance: VALPROATE SODIUM
     Indication: EPILEPSY
     Dosage: 500 MG, TID
     Route: 048
  8. ZOLPIDEM [Concomitant]
     Active Substance: ZOLPIDEM\ZOLPIDEM TARTRATE
     Indication: SLEEP DISORDER
     Route: 048

REACTIONS (12)
  - Osteonecrosis of jaw [Recovering/Resolving]
  - Lymphadenopathy [Recovering/Resolving]
  - Hypophagia [Recovering/Resolving]
  - Tooth abscess [Recovering/Resolving]
  - Soft tissue infection [Recovering/Resolving]
  - Oral cavity fistula [Recovered/Resolved]
  - Oral mucosal erythema [Recovering/Resolving]
  - Osteomyelitis [Recovered/Resolved]
  - Gingivitis [Recovered/Resolved]
  - Fistula discharge [Recovered/Resolved]
  - Oral pain [Recovering/Resolving]
  - Mouth swelling [Recovering/Resolving]

NARRATIVE: CASE EVENT DATE: 20141001
